FAERS Safety Report 11304211 (Version 1)
Quarter: 2015Q3

REPORT INFORMATION
  Report Type: Spontaneous
  Country: US (occurrence: US)
  Receive Date: 20150723
  Receipt Date: 20150723
  Transmission Date: 20151125
  Serious: No
  Sender: FDA-Public Use
  Company Number: US-JNJFOC-20141015204

PATIENT
  Age: 24 Month
  Sex: Male

DRUGS (2)
  1. PEPCID AC [Suspect]
     Active Substance: FAMOTIDINE
     Route: 048
  2. PEPCID AC [Suspect]
     Active Substance: FAMOTIDINE
     Indication: ACCIDENTAL EXPOSURE TO PRODUCT
     Dosage: 6 TABLETS ONCE
     Route: 048
     Dates: start: 20141017, end: 20141017

REACTIONS (1)
  - Accidental exposure to product by child [Unknown]
